FAERS Safety Report 12220764 (Version 1)
Quarter: 2016Q1

REPORT INFORMATION
  Report Type: Spontaneous
  Country: FR (occurrence: FR)
  Receive Date: 20160330
  Receipt Date: 20160330
  Transmission Date: 20160526
  Serious: Yes (Hospitalization)
  Sender: FDA-Public Use
  Company Number: FR-ABBVIE-16K-056-1592391-00

PATIENT
  Age: 17 Year
  Sex: Male

DRUGS (2)
  1. HUMIRA [Suspect]
     Active Substance: ADALIMUMAB
     Indication: CROHN^S DISEASE
     Route: 058
     Dates: start: 201507
  2. IMUREL [Suspect]
     Active Substance: AZATHIOPRINE SODIUM
     Indication: CROHN^S DISEASE
     Route: 048
     Dates: start: 201507

REACTIONS (13)
  - Suicidal ideation [Unknown]
  - Suicide attempt [Recovered/Resolved]
  - Thymus disorder [Unknown]
  - Bradyphrenia [Unknown]
  - Malaise [Unknown]
  - Anhedonia [Recovered/Resolved]
  - Psychomotor retardation [Unknown]
  - Abulia [Unknown]
  - Appetite disorder [Unknown]
  - Anhedonia [Unknown]
  - Aphasia [Unknown]
  - Anger [Unknown]
  - Depression [Recovering/Resolving]

NARRATIVE: CASE EVENT DATE: 2015
